FAERS Safety Report 5539893-3 (Version None)
Quarter: 2007Q4

REPORT INFORMATION
  Report Type: 
  Country: None (occurrence: None)
  Receive Date: 20071208
  Receipt Date: 20070501
  Transmission Date: 20080405
  Serious: No
  Sender: FDA-Public Use
  Company Number: US-AMGEN-KDL220084

PATIENT
  Sex: Female
  Weight: 90.8 kg

DRUGS (15)
  1. ENBREL [Suspect]
     Indication: RHEUMATOID ARTHRITIS
     Route: 058
     Dates: start: 20070301
  2. METHOTREXATE [Concomitant]
     Dates: start: 20070301
  3. SPIRIVA [Concomitant]
     Route: 055
  4. VYTORIN [Concomitant]
     Route: 048
  5. ROBITUSSIN-DM [Concomitant]
  6. PREMARIN [Concomitant]
     Route: 048
  7. DARVOCET [Concomitant]
     Route: 048
  8. BENICAR [Concomitant]
     Route: 048
  9. ALLEGRA [Concomitant]
     Route: 048
  10. FLONASE [Concomitant]
     Route: 045
  11. FLEXERIL [Concomitant]
     Route: 048
  12. MOBIC [Concomitant]
     Route: 048
  13. PERCOCET [Concomitant]
  14. FOLIC ACID [Concomitant]
     Route: 048
  15. PREDNISONE [Concomitant]
     Route: 048

REACTIONS (1)
  - INJECTION SITE PAIN [None]
